FAERS Safety Report 6856603-8 (Version None)
Quarter: 2010Q3

REPORT INFORMATION
  Report Type: 
  Country: None (occurrence: None)
  Receive Date: 20100719
  Receipt Date: 20100712
  Transmission Date: 20110219
  Serious: Yes (Hospitalization, Other)
  Sender: FDA-Public Use
  Company Number: US-ROCHE-715407

PATIENT
  Sex: Female
  Weight: 93 kg

DRUGS (21)
  1. BEVACIZUMAB [Suspect]
     Dosage: CYCLE 1
     Route: 065
     Dates: start: 20070810, end: 20070810
  2. BEVACIZUMAB [Suspect]
     Dosage: CYCLE 5
     Route: 065
     Dates: start: 20071106, end: 20071106
  3. BEVACIZUMAB [Suspect]
     Route: 065
  4. DOCETAXEL [Suspect]
     Dosage: ROUTE: PARENTERAL, FORM: CONCENTRATE FOR SOLUTION FOR INFUSION, CYCLE 1
     Route: 050
     Dates: start: 20070810, end: 20070810
  5. DOCETAXEL [Suspect]
     Dosage: CYCLE 5
     Route: 050
     Dates: start: 20071106, end: 20071106
  6. DOCETAXEL [Suspect]
     Route: 050
  7. CYCLOPHOSPHAMIDE [Suspect]
     Route: 065
     Dates: start: 20070810, end: 20071106
  8. DOXORUBICIN HCL [Suspect]
     Route: 065
     Dates: start: 20070810, end: 20071106
  9. ACIPHEX [Concomitant]
  10. AMBIEN [Concomitant]
  11. ATIVAN [Concomitant]
  12. PROCHLORPERAZINE [Concomitant]
  13. EMEND [Concomitant]
  14. CEFALEXINE [Concomitant]
  15. LAMISIL [Concomitant]
  16. LEVAQUIN [Concomitant]
  17. LEXAPRO [Concomitant]
  18. LUNESTA [Concomitant]
  19. OXYCODONE HCL [Concomitant]
  20. MORPHINE [Concomitant]
  21. ZOFRAN [Concomitant]
     Dosage: DRUG NAME REPORTED AS ZOFRAN ZYDIS LINGUAL

REACTIONS (5)
  - ASTHENIA [None]
  - DEHYDRATION [None]
  - GLOSSITIS [None]
  - METABOLIC ENCEPHALOPATHY [None]
  - STOMATITIS [None]
